FAERS Safety Report 18978436 (Version 1)
Quarter: 2021Q1

REPORT INFORMATION
  Report Type: Spontaneous
  Country: FR (occurrence: FR)
  Receive Date: 20210307
  Receipt Date: 20210307
  Transmission Date: 20210420
  Serious: Yes (Other)
  Sender: FDA-Public Use
  Company Number: FR-ABBVIE-21P-056-3798456-00

PATIENT
  Age: 45 Year
  Sex: Female

DRUGS (3)
  1. PROGESTERONE. [Concomitant]
     Active Substance: PROGESTERONE
     Indication: MENOPAUSE DELAYED
  2. ENANTONE LP [Suspect]
     Active Substance: LEUPROLIDE ACETATE
     Indication: ENDOMETRIOSIS
     Route: 065
  3. OESTROGEN [Concomitant]
     Indication: MENOPAUSE DELAYED

REACTIONS (3)
  - Haemorrhage [Unknown]
  - Therapeutic product effect decreased [Unknown]
  - Pain [Unknown]
